FAERS Safety Report 7014164-7 (Version None)
Quarter: 2010Q3

REPORT INFORMATION
  Report Type: 
  Country: None (occurrence: None)
  Receive Date: 20100924
  Receipt Date: 20100924
  Transmission Date: 20110219
  Serious: Yes (Life-Threatening, Hospitalization)
  Sender: FDA-Public Use
  Company Number: None

PATIENT
  Age: 24 Year
  Sex: Male
  Weight: 65.9 kg

DRUGS (3)
  1. ALLERGY EXTRACT SEE PAGE 3 [Suspect]
     Indication: HYPERSENSITIVITY
     Dosage: 0.15ML ONCE IM
     Route: 030
     Dates: start: 20100818
  2. ALLERGY EXTRACE SEE PAGE 3 [Suspect]
     Indication: HYPERSENSITIVITY
     Dosage: 0.15ML ONCE IM
     Route: 030
     Dates: start: 20100818
  3. BENADRYL [Concomitant]

REACTIONS (9)
  - BURNING SENSATION [None]
  - ERYTHEMA [None]
  - FALL [None]
  - FEELING HOT [None]
  - HYPERSENSITIVITY [None]
  - MALAISE [None]
  - MYDRIASIS [None]
  - UNRESPONSIVE TO STIMULI [None]
  - VOMITING [None]
